FAERS Safety Report 16445662 (Version 1)
Quarter: 2019Q2

REPORT INFORMATION
  Report Type: Spontaneous
  Country: CN (occurrence: CN)
  Receive Date: 20190618
  Receipt Date: 20190618
  Transmission Date: 20190711
  Serious: Yes (Other)
  Sender: FDA-Public Use
  Company Number: CN-PFIZER INC-2019252163

PATIENT
  Age: 45 Year
  Sex: Female

DRUGS (1)
  1. METHOTREXATE SODIUM. [Suspect]
     Active Substance: METHOTREXATE SODIUM
     Indication: NON-HODGKIN^S LYMPHOMA
     Dosage: UNK (HIGH-DOSE, FOR 2 CYCLES)
     Dates: start: 201605

REACTIONS (2)
  - Condition aggravated [Recovered/Resolved]
  - Hemiplegia [Recovered/Resolved]

NARRATIVE: CASE EVENT DATE: 2016
